FAERS Safety Report 16361328 (Version 1)
Quarter: 2019Q2

REPORT INFORMATION
  Report Type: Spontaneous
  Country: US (occurrence: US)
  Receive Date: 20190528
  Receipt Date: 20190528
  Transmission Date: 20190711
  Serious: Yes (Hospitalization, Other)
  Sender: FDA-Public Use
  Company Number: US-TERSERA THERAPEUTICS LLC-2019TRS000808

PATIENT

DRUGS (8)
  1. LAMOTRIGINE. [Suspect]
     Active Substance: LAMOTRIGINE
     Indication: AFFECTIVE DISORDER
     Dosage: 100 MG, BID
     Route: 048
  2. LAMOTRIGINE. [Suspect]
     Active Substance: LAMOTRIGINE
     Indication: SEIZURE PROPHYLAXIS
  3. DESMOPRESSIN [Interacting]
     Active Substance: DESMOPRESSIN
     Indication: ENURESIS
     Dosage: 0.2 MG, QD BEDTIME
     Route: 048
  4. CLOZAPINE. [Suspect]
     Active Substance: CLOZAPINE
     Indication: AGGRESSION
  5. QMIIZ ODT [Suspect]
     Active Substance: MELOXICAM
     Indication: ARTHRALGIA
     Dosage: 15 MG, QD
     Route: 048
  6. CLOZAPINE. [Suspect]
     Active Substance: CLOZAPINE
     Indication: SCHIZOPHRENIA
     Dosage: 225 MG EVERY MORNING AND 400 MG EVERY BEDTIME
     Route: 048
  7. CLOZAPINE. [Suspect]
     Active Substance: CLOZAPINE
     Indication: PSYCHOTIC SYMPTOM
  8. FLUOXETINE [FLUOXETINE HYDROCHLORIDE] [Suspect]
     Active Substance: FLUOXETINE HYDROCHLORIDE
     Indication: AFFECTIVE DISORDER
     Dosage: 10 MG, QD
     Route: 048

REACTIONS (8)
  - Off label use [Unknown]
  - Hallucination, visual [Unknown]
  - Drug ineffective [Unknown]
  - Suicidal ideation [Unknown]
  - Drug interaction [Unknown]
  - Hyponatraemia [Unknown]
  - Hallucination, auditory [Unknown]
  - Generalised tonic-clonic seizure [Recovered/Resolved]
